FAERS Safety Report 9501848 (Version 1)
Quarter: 2013Q1

REPORT INFORMATION
  Report Type: Spontaneous
  Country: US (occurrence: None)
  Receive Date: 20130107
  Receipt Date: 20130107
  Transmission Date: 20140127
  Serious: No
  Sender: FDA-Public Use
  Company Number: PHEH2012US022727

PATIENT
  Age: 38 Year
  Sex: Female

DRUGS (2)
  1. GILENYA (FINGOLIMOD) CAPSULE, 0.5MG [Suspect]
     Indication: MULTIPLE SCLEROSIS
     Route: 048
     Dates: start: 20121107
  2. NEURONTIN (GABAPENTIN) [Concomitant]

REACTIONS (11)
  - Fatigue [None]
  - Feeling abnormal [None]
  - Pain [None]
  - Influenza like illness [None]
  - Decreased appetite [None]
  - Abdominal pain [None]
  - Chest discomfort [None]
  - Dysgeusia [None]
  - Weight decreased [None]
  - Back pain [None]
  - Headache [None]
